FAERS Safety Report 8538498-X (Version None)
Quarter: 2012Q3

REPORT INFORMATION
  Report Type: 
  Country: None (occurrence: None)
  Receive Date: 20120726
  Receipt Date: 20120720
  Transmission Date: 20120928
  Serious: Yes (Death, Hospitalization, Other)
  Sender: FDA-Public Use
  Company Number: JP-CELGENEUS-087-50794-12072498

PATIENT
  Age: 67 Year
  Sex: Male

DRUGS (15)
  1. LANSOPRAZOLE [Concomitant]
     Route: 065
     Dates: end: 20120604
  2. MEROPENEM [Concomitant]
     Route: 065
     Dates: start: 20120202, end: 20120406
  3. VIDAZA [Suspect]
     Dosage: 37.5 MILLIGRAM/SQ. METER
     Route: 058
     Dates: start: 20120202, end: 20120208
  4. MEROPENEM [Concomitant]
     Route: 065
     Dates: start: 20120531, end: 20120606
  5. FUNGUARD [Concomitant]
     Route: 065
     Dates: start: 20120603, end: 20120606
  6. NEUART [Concomitant]
     Route: 065
     Dates: start: 20120605, end: 20120605
  7. VIDAZA [Suspect]
     Dosage: 37.5 MILLIGRAM/SQ. METER
     Route: 058
     Dates: start: 20120308, end: 20120316
  8. RAMELTEON [Concomitant]
     Route: 065
     Dates: start: 20120202
  9. SULFAMETHOXAZOLE AND TRIMETHOPRIM [Concomitant]
     Route: 065
     Dates: end: 20120604
  10. FUNGUARD [Concomitant]
     Route: 065
     Dates: start: 20120402, end: 20120406
  11. VANCOMYCIN [Concomitant]
     Route: 065
     Dates: start: 20120603, end: 20120606
  12. ALBUMINAR [Concomitant]
     Route: 065
     Dates: start: 20120604, end: 20120605
  13. PREDNISOLONE [Concomitant]
     Route: 065
     Dates: end: 20120604
  14. CYCLOCIDE [Concomitant]
     Dosage: 20 MILLIGRAM
     Dates: start: 20120604, end: 20120606
  15. METHYLPREDNISOLONE SODIUM SUCCINATE [Concomitant]
     Route: 065
     Dates: start: 20120605, end: 20120606

REACTIONS (8)
  - DECREASED APPETITE [None]
  - BLOOD BILIRUBIN INCREASED [None]
  - BLOOD LACTATE DEHYDROGENASE INCREASED [None]
  - EPISTAXIS [None]
  - ANAEMIA [None]
  - INFECTION [None]
  - ALANINE AMINOTRANSFERASE INCREASED [None]
  - PLATELET COUNT DECREASED [None]
